FAERS Safety Report 14762071 (Version 2)
Quarter: 2018Q2

REPORT INFORMATION
  Report Type: Spontaneous
  Country: CA (occurrence: CA)
  Receive Date: 20180416
  Receipt Date: 20180417
  Transmission Date: 20180711
  Serious: Yes (Other)
  Sender: FDA-Public Use
  Company Number: CA-ORION CORPORATION ORION PHARMA-TREX2018-1077

PATIENT
  Sex: Female

DRUGS (1)
  1. METHOTREXATE (TRADE NAME UNKNOWN) [Suspect]
     Active Substance: METHOTREXATE
     Indication: RHEUMATOID ARTHRITIS
     Route: 065

REACTIONS (5)
  - Herpes ophthalmic [Unknown]
  - Glaucoma [Unknown]
  - Rotator cuff syndrome [Unknown]
  - Drug intolerance [Unknown]
  - Herpes zoster [Unknown]
